FAERS Safety Report 5149240-7 (Version None)
Quarter: 2006Q4

REPORT INFORMATION
  Report Type: 
  Country: None (occurrence: None)
  Receive Date: 20061113
  Receipt Date: 20061103
  Transmission Date: 20070319
  Serious: Yes (Other)
  Sender: FDA-Public Use
  Company Number: MX-GLAXOSMITHKLINE-A0626428A

PATIENT
  Age: 39 Year
  Sex: Male

DRUGS (2)
  1. AROPAX [Suspect]
     Indication: DEPRESSION
     Dosage: 20MG PER DAY
     Route: 048
     Dates: start: 20060401
  2. CIALIS [Concomitant]
     Indication: ERECTILE DYSFUNCTION
     Dates: start: 20060401

REACTIONS (2)
  - HYPERSOMNIA [None]
  - SYNCOPE [None]
